FAERS Safety Report 6486124-6 (Version None)
Quarter: 2009Q4

REPORT INFORMATION
  Report Type: 
  Country: None (occurrence: None)
  Receive Date: 20091207
  Receipt Date: 20091123
  Transmission Date: 20100525
  Serious: Yes (Hospitalization)
  Sender: FDA-Public Use
  Company Number: 2009AC000440

PATIENT
  Age: 85 Year
  Sex: Female

DRUGS (43)
  1. DIGOXIN [Suspect]
     Dosage: 0.125 MG;QD; PO
     Route: 048
     Dates: start: 20060101, end: 20080501
  2. AVAPRO [Concomitant]
  3. LASIX [Concomitant]
  4. FOLIC ACID [Concomitant]
  5. LOPRESSOR [Concomitant]
  6. ALLOPURINOL [Concomitant]
  7. NIACIN [Concomitant]
  8. LOVASTATIN [Concomitant]
  9. ASPIRIN [Concomitant]
  10. IRON [Concomitant]
  11. CALCIUM [Concomitant]
  12. VITAMIN D [Concomitant]
  13. MULTI-VITAMINS [Concomitant]
  14. FOSAMAX [Concomitant]
  15. AMLODIPINE [Concomitant]
  16. PROCRIT [Concomitant]
  17. DIOVAN [Concomitant]
  18. ERGOCALCIFEROL [Concomitant]
  19. METOPROLOL TARTRATE [Concomitant]
  20. AMOXICILLIN [Concomitant]
  21. ALENDRONATE SODIUM [Concomitant]
  22. FOSAMAX PLUS D [Concomitant]
  23. FUROSEMIDE [Concomitant]
  24. RESTASIS [Concomitant]
  25. TRAMADOL HCL [Concomitant]
  26. PREMARIN [Concomitant]
  27. SULFAMETHOXAZOLE AND TRIMETHOPRIM [Concomitant]
  28. NITROGLYCERIN [Concomitant]
  29. CLONIDINE HCL [Concomitant]
  30. NIASPAN [Concomitant]
  31. ADVICOR [Concomitant]
  32. CARVEDILOL [Concomitant]
  33. VALSARTAN [Concomitant]
  34. SODIUM BICARBONATE [Concomitant]
  35. CEFUROXIME [Concomitant]
  36. PANTAPRAZOLE [Concomitant]
  37. CYANOCOBALAMIN [Concomitant]
  38. FERROUS SULFATE TAB [Concomitant]
  39. ASCORBIC ACID [Concomitant]
  40. VITAMIN B COMPLEX WITH FOLIC ACID [Concomitant]
  41. COUMADIN [Concomitant]
  42. VITAMIN B-12 [Concomitant]
  43. LOVENOX [Concomitant]

REACTIONS (40)
  - ABASIA [None]
  - ACTIVITIES OF DAILY LIVING IMPAIRED [None]
  - ANAEMIA POSTOPERATIVE [None]
  - APATHY [None]
  - ARRHYTHMIA [None]
  - ARTHRALGIA [None]
  - ATRIAL FIBRILLATION [None]
  - BLOOD PRESSURE DIASTOLIC DECREASED [None]
  - BUNDLE BRANCH BLOCK RIGHT [None]
  - CARDIOACTIVE DRUG LEVEL INCREASED [None]
  - CONFUSIONAL STATE [None]
  - DECREASED APPETITE [None]
  - DECUBITUS ULCER [None]
  - DEHYDRATION [None]
  - DIARRHOEA [None]
  - FEMORAL NECK FRACTURE [None]
  - FRACTURE NONUNION [None]
  - HALLUCINATION [None]
  - HEART RATE DECREASED [None]
  - HEART RATE INCREASED [None]
  - HYPERSOMNIA [None]
  - HYPERTENSIVE NEPHROPATHY [None]
  - HYPONATRAEMIA [None]
  - IMMOBILE [None]
  - IMPAIRED SELF-CARE [None]
  - LETHARGY [None]
  - NAUSEA [None]
  - NEPHROSCLEROSIS [None]
  - NODAL RHYTHM [None]
  - OEDEMA PERIPHERAL [None]
  - OVERDOSE [None]
  - RENAL INJURY [None]
  - SOCIAL AVOIDANT BEHAVIOUR [None]
  - SPEECH DISORDER [None]
  - THERAPEUTIC AGENT TOXICITY [None]
  - URINARY INCONTINENCE [None]
  - URINARY TRACT INFECTION [None]
  - VISION BLURRED [None]
  - VOMITING [None]
  - WEIGHT DECREASED [None]
